FAERS Safety Report 8652585 (Version 3)
Quarter: 2012Q4

REPORT INFORMATION
  Report Type: Report from Study
  Country: GB (occurrence: GB)
  Receive Date: 20120706
  Receipt Date: 20120924
  Transmission Date: 20130627
  Serious: Yes (Other)
  Sender: FDA-Public Use
  Company Number: GB-ABBOTT-12P-167-0950553-00

PATIENT
  Age: 58 Year
  Sex: Female

DRUGS (2)
  1. HUMIRA 40 MG/ 0.8 ML PRE-FILLED SYRINGE [Suspect]
     Indication: RHEUMATOID ARTHRITIS
     Route: 058
     Dates: start: 20040115
  2. OTHER BIOLOGIC [Concomitant]
     Indication: RHEUMATOID ARTHRITIS
     Dates: start: 200512

REACTIONS (4)
  - Liver disorder [Unknown]
  - Gallbladder disorder [Unknown]
  - Biliary tract disorder [Unknown]
  - Neoplasm [Unknown]
